FAERS Safety Report 24034474 (Version 1)
Quarter: 2024Q3

REPORT INFORMATION
  Report Type: Report from Study
  Country: AT (occurrence: AT)
  Receive Date: 20240701
  Receipt Date: 20240701
  Transmission Date: 20241017
  Serious: No
  Sender: ROCHE
  Company Number: AT-ROCHE-3453028

PATIENT
  Age: 6 Year
  Sex: Female
  Weight: 15.9 kg

DRUGS (1)
  1. EVRYSDI [Suspect]
     Active Substance: RISDIPLAM
     Indication: Spinal muscular atrophy
     Dosage: ON 11/OCT/2023, 27/FEB/2024, SHE RECEIVED LAST DOSE OF RISDIPLAM
     Route: 048
     Dates: start: 20220427

REACTIONS (2)
  - Pneumonia [Recovered/Resolved]
  - Respiratory tract infection [Recovered/Resolved]

NARRATIVE: CASE EVENT DATE: 20231002
